FAERS Safety Report 22197367 (Version 2)
Quarter: 2023Q2

REPORT INFORMATION
  Report Type: Report from Study
  Country: BG (occurrence: BG)
  Receive Date: 20230411
  Receipt Date: 20230601
  Transmission Date: 20230721
  Serious: Yes (Hospitalization)
  Sender: FDA-Public Use
  Company Number: BG-002147023-NVSC2023BG079249

PATIENT
  Age: 50 Year
  Sex: Male
  Weight: 115 kg

DRUGS (1)
  1. LEQVIO [Suspect]
     Active Substance: INCLISIRAN SODIUM
     Indication: Arteriosclerosis
     Dosage: 284 MG, OTHER (SINGLE SUBCUTANEOUS INJECTION INITIALLY, AGAIN AT 3 MONTHS, AND THEN EVERY 6 MONTHS)
     Route: 058
     Dates: start: 20221128

REACTIONS (2)
  - Chest pain [Not Recovered/Not Resolved]
  - Back pain [Not Recovered/Not Resolved]

NARRATIVE: CASE EVENT DATE: 20230330
